FAERS Safety Report 7045787-7 (Version None)
Quarter: 2010Q4

REPORT INFORMATION
  Report Type: 
  Country: None (occurrence: None)
  Receive Date: 20101014
  Receipt Date: 20101008
  Transmission Date: 20110411
  Serious: Yes (Other)
  Sender: FDA-Public Use
  Company Number: GB-BAXTER-2010BH025352

PATIENT
  Age: 14 Year
  Sex: Male
  Weight: 46 kg

DRUGS (3)
  1. METRONIDAZOLE [Suspect]
     Indication: PRODUCT USED FOR UNKNOWN INDICATION
     Route: 065
  2. CIPROFLOXACIN REDIBAG [Suspect]
     Indication: CROHN'S DISEASE
     Route: 042
     Dates: start: 20100928, end: 20101003
  3. OMEPRAZOLE [Suspect]
     Indication: PRODUCT USED FOR UNKNOWN INDICATION
     Route: 042

REACTIONS (2)
  - ANAPHYLACTIC REACTION [None]
  - CREPITATIONS [None]
